FAERS Safety Report 10892704 (Version 14)
Quarter: 2019Q3

REPORT INFORMATION
  Report Type: Spontaneous
  Country: US (occurrence: US)
  Receive Date: 20150306
  Receipt Date: 20190918
  Transmission Date: 20191004
  Serious: Yes (Hospitalization, Other)
  Sender: FDA-Public Use
  Company Number: US-PFIZER INC-2015080513

PATIENT
  Age: 76 Year
  Sex: Female
  Weight: 66 kg

DRUGS (45)
  1. LYRICA [Suspect]
     Active Substance: PREGABALIN
     Dosage: 150 MG, 3X/DAY
     Route: 048
  2. ANTIPYRINE + BENZOCAINE [Concomitant]
     Dosage: 1 GTT, AS NEEDED (.4-1.4 % SOLUTION 1 DROP IN AFFECTED EAR 3 TIMES DAILY AS NEEDED)
  3. VENTOLIN HFA [Concomitant]
     Active Substance: ALBUTEROL SULFATE
     Dosage: 2 DF, AS NEEDED [108(90 BASE) MCG/ACT AEROSOL SOLUTION 2 PUFFS AS NEEDED EVERY 4 HRS]
  4. TIZANIDINE. [Concomitant]
     Active Substance: TIZANIDINE
     Dosage: 4 MG, 1X/DAY (AS NEEDED AT AT BEDTIME)
     Route: 048
  5. VITAMIN D3 [Concomitant]
     Active Substance: CHOLECALCIFEROL
     Dosage: 5000 IU, 1X/DAY (5000 UNIT CAPSULE 1 CAPSULE)
     Route: 048
  6. BENZONATATE. [Concomitant]
     Active Substance: BENZONATATE
     Dosage: 100 MG, AS NEEDED (1 CAPSULE AS NEEDED EVERY 8 HOURS)
  7. LORCET [Concomitant]
     Active Substance: ACETAMINOPHEN\HYDROCODONE BITARTRATE
     Dosage: UNK
  8. LYRICA [Suspect]
     Active Substance: PREGABALIN
     Indication: FIBROMYALGIA
     Dosage: 150 MG, 3X/DAY
     Route: 048
  9. LIPITOR [Concomitant]
     Active Substance: ATORVASTATIN CALCIUM
     Indication: BLOOD CHOLESTEROL ABNORMAL
     Dosage: 20 MG, 1X/DAY
     Route: 048
  10. DIAZEPAM. [Concomitant]
     Active Substance: DIAZEPAM
     Dosage: 5 MG, AS NEEDED
  11. VITAMIN C [Concomitant]
     Active Substance: ASCORBIC ACID
     Dosage: 500 MG, 1X/DAY
  12. FISH OIL [Concomitant]
     Active Substance: FISH OIL
     Dosage: 500 MG, 1X/DAY
  13. OCEAN SALINE NASAL SPRAY [Concomitant]
     Active Substance: SODIUM CHLORIDE
     Dosage: UNK, AS NEEDED (SALINE SPRAY)
     Route: 045
  14. WELLBUTRIN XL [Concomitant]
     Active Substance: BUPROPION HYDROCHLORIDE
     Dosage: 150 MG, 1X/DAY
     Route: 048
  15. VALIUM [Concomitant]
     Active Substance: DIAZEPAM
     Dosage: 5 MG, AS NEEDED [1 TABLET ORALLY ONCE DAILY AS NEEDED]
     Route: 048
  16. LORCET PLUS [Concomitant]
     Active Substance: ACETAMINOPHEN\HYDROCODONE BITARTRATE
     Indication: PAIN
     Dosage: UNK, 1X/DAY (7.5-325 MG)
  17. INFLUENZA VACCINE [Concomitant]
     Active Substance: INFLUENZA VIRUS VACCINE
     Dosage: UNK
     Dates: start: 20151025, end: 20151025
  18. LIPITOR [Concomitant]
     Active Substance: ATORVASTATIN CALCIUM
     Indication: HYPERLIPIDAEMIA
  19. POLYETHYLENE GLYCOL 3350. [Concomitant]
     Active Substance: POLYETHYLENE GLYCOL 3350
     Dosage: UNK, DAILY (0.5 TO 1 CAP/DAY)
  20. HYDROCODONE-ACETAMINOPHEN [Concomitant]
     Active Substance: ACETAMINOPHEN\HYDROCODONE
     Indication: PAIN
     Dosage: 1 DF, DAILY (7.5-325)
  21. NEXUM 24HR [Concomitant]
     Dosage: 40 MG, 1X/DAY
  22. NAPROXEN. [Concomitant]
     Active Substance: NAPROXEN
     Indication: PAIN
     Dosage: 220 MG, 3X/DAY (1 EVERY 8 HR)
  23. FISH OIL [Concomitant]
     Active Substance: FISH OIL
     Dosage: 1000 MG, 1X/DAY
  24. ACIDOPHILUS [Concomitant]
     Active Substance: LACTOBACILLUS ACIDOPHILUS
     Dosage: 1 DF, 1X/DAY (1 TABLET ONCE A DAY)
  25. HYOSCYAMINE. [Concomitant]
     Active Substance: HYOSCYAMINE
     Dosage: 125 MG, EVERY 4 HRS [1 Q 4HRS BEFORE MEALS)
  26. PREVNAR 13 [Concomitant]
     Active Substance: PNEUMOCOCCAL 13-VALENT CONJUGATE VACCINE
     Dosage: UNK
     Dates: start: 20150423, end: 20150423
  27. LYRICA [Suspect]
     Active Substance: PREGABALIN
     Dosage: 300 MG, 3X/DAY
     Route: 048
     Dates: start: 20160121
  28. ONDANSETRON [Concomitant]
     Active Substance: ONDANSETRON
     Dosage: 8 MG, 3X/DAY (1 TAB EVERY 8 HR)
     Route: 060
  29. L-LYSINE [Concomitant]
     Active Substance: LYSINE
     Dosage: 150 MG, 3X/DAY
     Route: 048
  30. NEXIUM [Concomitant]
     Active Substance: ESOMEPRAZOLE MAGNESIUM
     Indication: GASTROOESOPHAGEAL REFLUX DISEASE
     Dosage: 40 MG, 1X/DAY (1 EVERY MORNING)
     Route: 048
  31. PROBIOTIC [Concomitant]
     Active Substance: PROBIOTICS NOS
     Dosage: 1 DF, 1X/DAY
     Route: 048
  32. LORCET PLUS [Concomitant]
     Active Substance: ACETAMINOPHEN\HYDROCODONE BITARTRATE
     Indication: INTERVERTEBRAL DISC DEGENERATION
  33. POLYETHYLENE GLYCOL 3350. [Concomitant]
     Active Substance: POLYETHYLENE GLYCOL 3350
     Dosage: 1X/DAY (1 CAPFUL MIXED WITH 8 OZ OF FLUID )
     Route: 048
  34. ATORVASTATIN [Concomitant]
     Active Substance: ATORVASTATIN
     Dosage: 20 MG, 1X/DAY
  35. CALCIUM + VITAMIN D3 [Concomitant]
     Active Substance: CALCIUM CARBONATE\CHOLECALCIFEROL
     Dosage: 1 DF, 1X/DAY ([CALCIUM CARBONATE 600MG]/[ COLECALCIFEROL 400 MG] 1 TABLET WITH FOOD )
  36. TRAMADOL HYDROCHLORIDE. [Concomitant]
     Active Substance: TRAMADOL HYDROCHLORIDE
     Dosage: 50 MG, AS NEEDED (1 TABLET AS NEEDED EVERY 8 HRS)
  37. TRAMADOL. [Concomitant]
     Active Substance: TRAMADOL
     Dosage: UNK, AS NEEDED
  38. LYRICA [Suspect]
     Active Substance: PREGABALIN
     Indication: INTERVERTEBRAL DISC DEGENERATION
     Dosage: 150 MG, 2X/DAY
     Route: 048
     Dates: start: 2015
  39. LYRICA [Suspect]
     Active Substance: PREGABALIN
     Dosage: 300 MG, DAILY
  40. BUPROPION HCL [Concomitant]
     Active Substance: BUPROPION HYDROCHLORIDE
     Dosage: 150 MG, 1X/DAY
  41. VITAMIN B12 [Concomitant]
     Active Substance: CYANOCOBALAMIN
     Dosage: 1000 UG, 1X/DAY
  42. L-LYSINE [Concomitant]
     Active Substance: LYSINE
     Dosage: UNK, AS NEEDED (500 AS NEEDED)
  43. LYSINE [Concomitant]
     Active Substance: LYSINE
     Dosage: 500 MG, AS NEEDED  [1 TABLET ORALLY ONCE DAILY. NOTES: PRN]
     Route: 048
  44. HYOMAX [Concomitant]
     Active Substance: HYOSCYAMINE SULFATE
     Dosage: 0.125 MG, AS NEEDED (1 TABLET SUBLINGUALLY EVERY 4 HOURS AS NEEDED)
     Route: 060
  45. PREDNISONE. [Concomitant]
     Active Substance: PREDNISONE
     Dosage: 10 MG, UNK
     Route: 048

REACTIONS (27)
  - Gastric disorder [Unknown]
  - Drug dependence [Unknown]
  - Drug ineffective [Unknown]
  - Neuralgia [Unknown]
  - Burning sensation [Unknown]
  - Hyperlipidaemia [Unknown]
  - Blood cholesterol increased [Unknown]
  - Anxiety [Unknown]
  - Asthma [Unknown]
  - Bronchitis [Not Recovered/Not Resolved]
  - Product dispensing error [Unknown]
  - Hypoacusis [Unknown]
  - Nasopharyngitis [Unknown]
  - Cough [Unknown]
  - Malaise [Unknown]
  - Generalised anxiety disorder [Unknown]
  - Back disorder [Unknown]
  - Pneumonia [Recovered/Resolved]
  - Overdose [Unknown]
  - Fatigue [Unknown]
  - Dyspnoea [Unknown]
  - Gastrooesophageal reflux disease [Unknown]
  - Weight increased [Not Recovered/Not Resolved]
  - Wheezing [Unknown]
  - Hypertension [Unknown]
  - Pain [Unknown]
  - Arthritis [Unknown]

NARRATIVE: CASE EVENT DATE: 20160121
